FAERS Safety Report 6429593-X (Version None)
Quarter: 2009Q4

REPORT INFORMATION
  Report Type: 
  Country: None (occurrence: None)
  Receive Date: 20091103
  Receipt Date: 20091018
  Transmission Date: 20100525
  Serious: Yes (Other)
  Sender: FDA-Public Use
  Company Number: AVE_01055_2009

PATIENT
  Sex: Female
  Weight: 54.4316 kg

DRUGS (4)
  1. CLONIDINE TRANSDERMAL SYSTEM 0.3 MG [Suspect]
     Indication: MALIGNANT HYPERTENSION
     Dosage: (O.3 MG QD, VIA A 1/WEEKLY PATCH TRANSDERMAL)
     Route: 062
     Dates: start: 20091001
  2. NIFEDIPINE [Concomitant]
  3. ALDACTONE [Concomitant]
  4. TOPROL-XL [Concomitant]

REACTIONS (3)
  - BLOOD PRESSURE INCREASED [None]
  - DRUG INEFFECTIVE [None]
  - PRODUCT ADHESION ISSUE [None]
